FAERS Safety Report 5482868-3 (Version None)
Quarter: 2007Q4

REPORT INFORMATION
  Report Type: 
  Country: None (occurrence: None)
  Receive Date: 20071011
  Receipt Date: 20071002
  Transmission Date: 20080405
  Serious: Yes (Death, Other)
  Sender: FDA-Public Use
  Company Number: CH-PFIZER INC-2007081486

PATIENT
  Age: 60 Year
  Sex: Male

DRUGS (8)
  1. XANAX [Suspect]
     Indication: ANXIETY DISORDER
     Dosage: DAILY DOSE:1MG
     Route: 048
  2. OXYCONTIN [Suspect]
     Indication: PAIN
     Dosage: DAILY DOSE:20MG
     Route: 048
  3. ZOLPIDEM TARTRATE [Suspect]
     Indication: SLEEP DISORDER
     Dosage: DAILY DOSE:12.5MG
     Route: 048
  4. SERESTA [Suspect]
     Indication: ANXIETY DISORDER
     Dosage: DAILY DOSE:50MG
     Route: 048
  5. ANXIOLIT [Suspect]
     Indication: ANXIETY DISORDER
     Route: 048
  6. SORTIS [Concomitant]
     Dosage: DAILY DOSE:40MG
     Route: 048
  7. REMERON [Concomitant]
     Dosage: DAILY DOSE:30MG
     Route: 048
  8. DIOVAN [Concomitant]
     Dosage: DAILY DOSE:160MG
     Route: 048

REACTIONS (18)
  - ANOXIC ENCEPHALOPATHY [None]
  - BLOOD CREATINE PHOSPHOKINASE INCREASED [None]
  - BLOOD POTASSIUM INCREASED [None]
  - CARDIAC ARREST [None]
  - CONVULSION [None]
  - DRUG TOXICITY [None]
  - HAEMODIALYSIS [None]
  - HEPATIC FAILURE [None]
  - HYPOGLYCAEMIA [None]
  - HYPOTHERMIA [None]
  - LOSS OF CONSCIOUSNESS [None]
  - METABOLIC ACIDOSIS [None]
  - MULTI-ORGAN FAILURE [None]
  - MYDRIASIS [None]
  - NEUROLEPTIC MALIGNANT SYNDROME [None]
  - PYREXIA [None]
  - RENAL FAILURE [None]
  - RESPIRATORY ARREST [None]
